FAERS Safety Report 6903159-7 (Version None)
Quarter: 2010Q3

REPORT INFORMATION
  Report Type: 
  Country: None (occurrence: None)
  Receive Date: 20100803
  Receipt Date: 20080610
  Transmission Date: 20110219
  Serious: No
  Sender: FDA-Public Use
  Company Number: US-PFIZER INC-2008049969

PATIENT
  Sex: Female
  Weight: 78 kg

DRUGS (6)
  1. LYRICA [Suspect]
     Indication: INTERVERTEBRAL DISC DISORDER
     Dates: start: 20080607, end: 20080607
  2. METFORMIN HCL [Concomitant]
  3. PRILOSEC [Concomitant]
  4. MELOXICAM [Concomitant]
  5. PROTONIX [Concomitant]
  6. DARVOCET [Concomitant]

REACTIONS (4)
  - ALTERED VISUAL DEPTH PERCEPTION [None]
  - ASTHENIA [None]
  - CONFUSIONAL STATE [None]
  - DIZZINESS [None]
